FAERS Safety Report 6646061-0 (Version None)
Quarter: 2010Q1

REPORT INFORMATION
  Report Type: 
  Country: None (occurrence: None)
  Receive Date: 20100323
  Receipt Date: 20100315
  Transmission Date: 20100710
  Serious: Yes (Other)
  Sender: FDA-Public Use
  Company Number: US-ELI_LILLY_AND_COMPANY-US201003004701

PATIENT
  Sex: Male
  Weight: 93.878 kg

DRUGS (3)
  1. PRASUGREL HYDROCHLORIDE [Suspect]
     Indication: ACUTE CORONARY SYNDROME
     Route: 048
     Dates: start: 20100217
  2. ASPIRIN [Concomitant]
     Dosage: 325 MG, UNK
     Dates: start: 20100215, end: 20100216
  3. ASPIRIN [Concomitant]
     Dosage: 81 MG, UNK
     Dates: start: 20100217

REACTIONS (1)
  - COAGULOPATHY [None]
